FAERS Safety Report 9731814 (Version 1)
Quarter: 2013Q4

REPORT INFORMATION
  Report Type: Spontaneous
  Country: US (occurrence: US)
  Receive Date: 20131205
  Receipt Date: 20131205
  Transmission Date: 20140711
  Serious: No
  Sender: FDA-Public Use
  Company Number: US-ENDO PHARMACEUTICALS INC.-HCDA20120059

PATIENT
  Age: 73 Year
  Sex: Female

DRUGS (5)
  1. HYDROCODONE/ACETAMINOPHEN 5MG/500MG [Suspect]
     Indication: PAIN
     Dosage: 7.5/750 MG
     Route: 048
     Dates: start: 20120720
  2. HYDROCODONE/ACETAMINOPHEN 5MG/500MG [Suspect]
     Indication: BREAST OPERATION
     Dosage: 7.5/750 MG
     Route: 048
     Dates: start: 201207, end: 20120720
  3. LOSARTAN [Concomitant]
     Indication: HYPERTENSION
     Route: 065
     Dates: end: 20120722
  4. LOSARTAN [Concomitant]
     Route: 065
     Dates: start: 20120723
  5. ATENOLOL [Concomitant]
     Indication: HYPERTENSION
     Dosage: UNKNOWN
     Route: 065

REACTIONS (2)
  - Blood pressure increased [Not Recovered/Not Resolved]
  - Headache [Not Recovered/Not Resolved]
